FAERS Safety Report 18559785 (Version 1)
Quarter: 2020Q4

REPORT INFORMATION
  Report Type: Spontaneous
  Country: US (occurrence: US)
  Receive Date: 20201127
  Receipt Date: 20201127
  Transmission Date: 20210114
  Serious: Yes (Hospitalization)
  Sender: FDA-Public Use
  Company Number: None

PATIENT
  Age: 79 Year
  Sex: Female
  Weight: 107.05 kg

DRUGS (18)
  1. LIPITOR [Concomitant]
     Active Substance: ATORVASTATIN CALCIUM
  2. MAGNESIUM CHLORIDE. [Concomitant]
     Active Substance: MAGNESIUM CHLORIDE
  3. MYRBETRIQ [Concomitant]
     Active Substance: MIRABEGRON
  4. ANTIDIARRHEAL [Concomitant]
  5. VITAMIN D [Concomitant]
     Active Substance: VITAMIN D NOS
  6. ELIQUIS [Suspect]
     Active Substance: APIXABAN
     Indication: ATRIAL FIBRILLATION
     Dosage: ?          QUANTITY:2 PILLS;OTHER FREQUENCY:I PILL MORN; 1 EVE;?
     Route: 048
     Dates: start: 20201010, end: 20201011
  7. CLARITIN [Concomitant]
     Active Substance: LORATADINE
  8. CELEXA [Concomitant]
     Active Substance: CITALOPRAM HYDROBROMIDE
  9. PROTONIX [Concomitant]
     Active Substance: PANTOPRAZOLE SODIUM
  10. METFORMIN [Concomitant]
     Active Substance: METFORMIN HYDROCHLORIDE
  11. LANTUS [Concomitant]
     Active Substance: INSULIN GLARGINE
  12. XARELTO [Concomitant]
     Active Substance: RIVAROXABAN
  13. GLIPIZIDE. [Concomitant]
     Active Substance: GLIPIZIDE
  14. LISINOPRIL. [Concomitant]
     Active Substance: LISINOPRIL
  15. CALCIUM CITRATE [Concomitant]
     Active Substance: CALCIUM CITRATE
  16. METOPROLOL SUCC ER [Concomitant]
     Active Substance: METOPROLOL SUCCINATE
  17. IRON [Concomitant]
     Active Substance: IRON
  18. VITAMIN B12 [Concomitant]
     Active Substance: CYANOCOBALAMIN

REACTIONS (2)
  - Diarrhoea [None]
  - Faeces discoloured [None]

NARRATIVE: CASE EVENT DATE: 20201011
